FAERS Safety Report 14248951 (Version 1)
Quarter: 2017Q4

REPORT INFORMATION
  Report Type: Spontaneous
  Country: GB (occurrence: GB)
  Receive Date: 20171204
  Receipt Date: 20171204
  Transmission Date: 20180321
  Serious: Yes (Other)
  Sender: FDA-Public Use
  Company Number: GB-MYLANLABS-2017M1075155

PATIENT
  Age: 26 Year
  Sex: Female
  Weight: 74 kg

DRUGS (1)
  1. CLARITHROMYCIN. [Suspect]
     Active Substance: CLARITHROMYCIN
     Indication: PHARYNGITIS
     Route: 048
     Dates: start: 20171015, end: 20171019

REACTIONS (6)
  - Hepatic enzyme increased [Recovering/Resolving]
  - Burning sensation [Unknown]
  - Pruritus [Unknown]
  - Oedema [Unknown]
  - Dermatitis contact [Unknown]
  - Rash maculo-papular [Unknown]

NARRATIVE: CASE EVENT DATE: 20171026
